FAERS Safety Report 17028798 (Version 4)
Quarter: 2019Q4

REPORT INFORMATION
  Report Type: Spontaneous
  Country: JP (occurrence: JP)
  Receive Date: 20191114
  Receipt Date: 20191224
  Transmission Date: 20200122
  Serious: Yes (Hospitalization, Other)
  Sender: FDA-Public Use
  Company Number: JP-ASTELLAS-2019JP025635

PATIENT
  Age: 36 Year
  Sex: Female
  Weight: 55 kg

DRUGS (7)
  1. ATONIN-O [Concomitant]
     Active Substance: OXYTOCIN
     Indication: CAESAREAN SECTION
     Route: 042
     Dates: start: 20180706, end: 20180706
  2. BAYASPIRIN [Concomitant]
     Active Substance: ASPIRIN
     Indication: HABITUAL ABORTION
     Route: 048
     Dates: start: 20180110, end: 20180606
  3. RINDERON                           /00008501/ [Concomitant]
     Active Substance: BETAMETHASONE
     Indication: MATERNAL THERAPY TO ENHANCE FOETAL LUNG MATURITY
     Dosage: 12 MG/DAY, UNKNOWN FREQ., CONTINUOUS
     Route: 042
     Dates: start: 20180705, end: 20180706
  4. MYCOPHENOLATE MOFETIL. [Concomitant]
     Active Substance: MYCOPHENOLATE MOFETIL
     Indication: IMMUNOSUPPRESSION
     Dosage: UNK UNK, UNKNOWN FREQ.
     Route: 065
  5. GRACEPTOR [Suspect]
     Active Substance: TACROLIMUS
     Indication: IMMUNOSUPPRESSION
     Route: 048
     Dates: start: 20140519
  6. AZATHIOPRINE. [Concomitant]
     Active Substance: AZATHIOPRINE
     Indication: IMMUNOSUPPRESSION
     Route: 048
     Dates: start: 20170216, end: 20181030
  7. NICARDIPINE HYDROCHLORIDE. [Concomitant]
     Active Substance: NICARDIPINE HYDROCHLORIDE
     Indication: GESTATIONAL HYPERTENSION
     Dosage: 40 MG/DAY, UNKNOWN FREQ., CONTINUOUS
     Route: 042
     Dates: start: 20180705, end: 20180711

REACTIONS (4)
  - Gestational hypertension [Recovering/Resolving]
  - Protein urine present [Recovering/Resolving]
  - Maternal exposure during pregnancy [Unknown]
  - Premature delivery [Recovered/Resolved]

NARRATIVE: CASE EVENT DATE: 20180606
